FAERS Safety Report 9934513 (Version 1)
Quarter: 2014Q1

REPORT INFORMATION
  Report Type: Spontaneous
  Country: US (occurrence: US)
  Receive Date: 20140228
  Receipt Date: 20140228
  Transmission Date: 20141002
  Serious: No
  Sender: FDA-Public Use
  Company Number: US-009507513-1402USA013676

PATIENT
  Sex: Female

DRUGS (2)
  1. MIRALAX [Suspect]
     Indication: CONSTIPATION
     Dosage: 17 G, UNKNOWN
     Route: 048
  2. MIRALAX [Suspect]
     Dosage: UNK, UNKNOWN
     Route: 048

REACTIONS (4)
  - Diarrhoea [Unknown]
  - Underdose [Unknown]
  - Drug ineffective [Unknown]
  - Off label use [Unknown]
